FAERS Safety Report 7517061-3 (Version None)
Quarter: 2011Q2

REPORT INFORMATION
  Report Type: 
  Country: None (occurrence: None)
  Receive Date: 20110526
  Receipt Date: 20110526
  Transmission Date: 20111010
  Serious: Yes (Other)
  Sender: FDA-Public Use
  Company Number: None

PATIENT
  Sex: Female
  Weight: 68.0396 kg

DRUGS (1)
  1. PROLIA [Suspect]
     Indication: OSTEOPOROSIS
     Dosage: 1 SHOT 9/29/10
     Dates: start: 20100929

REACTIONS (7)
  - PAIN IN EXTREMITY [None]
  - RASH [None]
  - FATIGUE [None]
  - MIGRAINE WITH AURA [None]
  - BLOOD IRON DECREASED [None]
  - HYPOACUSIS [None]
  - EUSTACHIAN TUBE OBSTRUCTION [None]
